FAERS Safety Report 5109300-3 (Version None)
Quarter: 2006Q3

REPORT INFORMATION
  Report Type: 
  Country: None (occurrence: None)
  Receive Date: 20060920
  Receipt Date: 20060914
  Transmission Date: 20061208
  Serious: Yes (Other)
  Sender: FDA-Public Use
  Company Number: CA-GLAXOSMITHKLINE-A0620271A

PATIENT
  Age: 44 Year
  Sex: Male

DRUGS (4)
  1. KIVEXA [Suspect]
     Dosage: 1TAB PER DAY
     Dates: start: 20060901
  2. SUSTIVA [Concomitant]
     Dates: start: 20060901
  3. CIALIS [Concomitant]
  4. COUMADIN [Concomitant]

REACTIONS (3)
  - HUNGER [None]
  - HYPERHIDROSIS [None]
  - HYPOGLYCAEMIA [None]
